FAERS Safety Report 23183957 (Version 2)
Quarter: 2023Q4

REPORT INFORMATION
  Report Type: Spontaneous
  Country: CZ (occurrence: CZ)
  Receive Date: 20231114
  Receipt Date: 20231121
  Transmission Date: 20240110
  Serious: Yes (Other)
  Sender: FDA-Public Use
  Company Number: CZ-OTSUKA-2023_028260

PATIENT
  Sex: Male

DRUGS (4)
  1. CARIPRAZINE [Suspect]
     Active Substance: CARIPRAZINE
     Indication: Schizophrenia
     Route: 065
  2. CLOZAPINE [Suspect]
     Active Substance: CLOZAPINE
     Indication: Schizophrenia
     Route: 065
  3. BREXPIPRAZOLE [Suspect]
     Active Substance: BREXPIPRAZOLE
     Indication: Schizophrenia
     Route: 065
  4. ARIPIPRAZOLE [Suspect]
     Active Substance: ARIPIPRAZOLE
     Indication: Schizophrenia
     Route: 065

REACTIONS (5)
  - Tardive dyskinesia [Recovered/Resolved]
  - Drug ineffective [Unknown]
  - Akathisia [Recovered/Resolved]
  - Activation syndrome [Recovered/Resolved]
  - Dyskinesia [Unknown]
